FAERS Safety Report 4269945-X (Version None)
Quarter: 2004Q1

REPORT INFORMATION
  Report Type: 
  Country: None (occurrence: None)
  Receive Date: 20040112
  Receipt Date: 20031230
  Transmission Date: 20041129
  Serious: Yes (Hospitalization)
  Sender: FDA-Public Use
  Company Number: US-JNJFOC-20040100318

PATIENT
  Age: 69 Year
  Sex: Male
  Weight: 66.2252 kg

DRUGS (12)
  1. INFLIXIMAB (INFLXIMAB, RECOMBINANT) LYOPHILIZED POWDER [Suspect]
     Indication: RHEUMATOID ARTHRITIS
     Dosage: INTRAVENOUS
     Route: 042
     Dates: start: 20020805, end: 20020819
  2. LASIX [Concomitant]
  3. LESCOL [Concomitant]
  4. PREDNIOSNE (PREDNISONE) [Concomitant]
  5. ISOSORBIDE (ISOSORBIDE) [Concomitant]
  6. KLOR-CON [Concomitant]
  7. CITRACAL (CALCIUM CITRATE) [Concomitant]
  8. ULTRACET (TRAMADOL/APAP) [Concomitant]
  9. SULFASALAZINE [Concomitant]
  10. RIFAMPICIN [Concomitant]
  11. ISONIAZID [Concomitant]
  12. ETHAMBUTOL HCL [Concomitant]

REACTIONS (2)
  - MYCOBACTERIUM KANSASII INFECTION [None]
  - PNEUMONIA PRIMARY ATYPICAL [None]
